FAERS Safety Report 22622292 (Version 3)
Quarter: 2023Q2

REPORT INFORMATION
  Report Type: Spontaneous
  Country: US (occurrence: US)
  Receive Date: 20230620
  Receipt Date: 20230626
  Transmission Date: 20230722
  Serious: Yes (Other)
  Sender: FDA-Public Use
  Company Number: US-MLMSERVICE-20230608-4336005-1

PATIENT
  Age: 13 Year
  Sex: Female

DRUGS (6)
  1. CLOBAZAM [Suspect]
     Active Substance: CLOBAZAM
     Indication: Temporal lobe epilepsy
     Dosage: CBZ WAS THEN ALSO TAPERED OVER A 10-WEEK PERIOD
     Route: 065
     Dates: start: 201504, end: 2015
  2. CLOBAZAM [Suspect]
     Active Substance: CLOBAZAM
     Dosage: TITRATED UP TO 5 MG QD
     Route: 065
     Dates: start: 201504, end: 2015
  3. LEVETIRACETAM [Suspect]
     Active Substance: LEVETIRACETAM
     Indication: Temporal lobe epilepsy
     Dosage: UP TO 2500 MG QD
     Route: 065
     Dates: start: 201504, end: 2015
  4. LEVETIRACETAM [Suspect]
     Active Substance: LEVETIRACETAM
     Dosage: COMPLETELY TAPERED OVER THE FOLLOWING 7 WEEKS
     Route: 065
     Dates: start: 2015, end: 2015
  5. LACOSAMIDE [Suspect]
     Active Substance: LACOSAMIDE
     Indication: Temporal lobe epilepsy
     Dosage: UP TO 400 MG QD
     Route: 065
     Dates: start: 201504, end: 2015
  6. LACOSAMIDE [Suspect]
     Active Substance: LACOSAMIDE
     Dosage: LAC WAS PHASED OUT SLOWLY OVER THE FOLLOWING 8 WEEKS
     Route: 065
     Dates: start: 201504, end: 2015

REACTIONS (2)
  - Sedation [Recovering/Resolving]
  - Depressed level of consciousness [Recovering/Resolving]

NARRATIVE: CASE EVENT DATE: 20150101
